FAERS Safety Report 8464285-7 (Version None)
Quarter: 2012Q2

REPORT INFORMATION
  Report Type: 
  Country: None (occurrence: None)
  Receive Date: 20120625
  Receipt Date: 20111130
  Transmission Date: 20120825
  Serious: Yes (Other)
  Sender: FDA-Public Use
  Company Number: US-ROCHE-1018474

PATIENT
  Age: 67 Year
  Sex: Female

DRUGS (5)
  1. BONIVA [Suspect]
     Indication: OSTEOPENIA
     Dosage: UNKNOWN
     Route: 048
     Dates: start: 20050101
  2. FOSAMAX [Concomitant]
     Route: 065
  3. PROZAC [Concomitant]
     Dosage: UNKNOWN
  4. SIMVASTATIN [Concomitant]
     Dosage: UNKNOWN
  5. VITAMIN D [Concomitant]
     Dosage: UNKNOWN

REACTIONS (1)
  - ATYPICAL FEMUR FRACTURE [None]
